FAERS Safety Report 21135830 (Version 6)
Quarter: 2022Q3

REPORT INFORMATION
  Report Type: Spontaneous
  Country: CA (occurrence: CA)
  Receive Date: 20220727
  Receipt Date: 20220922
  Transmission Date: 20221026
  Serious: Yes (Other)
  Sender: FDA-Public Use
  Company Number: CA-CELLTRION INC.-2022CA009555

PATIENT

DRUGS (24)
  1. INFLECTRA [Suspect]
     Active Substance: INFLIXIMAB-DYYB
     Indication: Crohn^s disease
     Dosage: 10MG/KG, 0, 2, 6, THEN EVERY 8 WEEKS, WEEK 0 DOSE AT HOSPITAL
     Route: 042
     Dates: start: 20220513
  2. INFLECTRA [Suspect]
     Active Substance: INFLIXIMAB-DYYB
     Dosage: 400 MG, Q 0, 2, 6, THEN EVERY 8 WEEKSWEEK 0 DOSE AT HOSPITAL
     Route: 042
     Dates: start: 20220513, end: 20220513
  3. INFLECTRA [Suspect]
     Active Substance: INFLIXIMAB-DYYB
     Dosage: INFUSED APPROXIMATELY 25-30ML, 0, 2, 6, THEN EVERY 8 WEEKS
     Route: 042
     Dates: start: 20220624, end: 20220624
  4. INFLECTRA [Suspect]
     Active Substance: INFLIXIMAB-DYYB
     Dosage: 400 MG RE-INDUCTION - Q8 WEEKS
     Route: 042
     Dates: start: 20220722
  5. INFLECTRA [Suspect]
     Active Substance: INFLIXIMAB-DYYB
     Dosage: 1 DF, RE-INDUCTION - DOSE NOT YET CONFIRMED BY THE PHYSICIAN
     Route: 042
     Dates: start: 20220722, end: 20220722
  6. BISOPROLOL [Concomitant]
     Active Substance: BISOPROLOL
     Dosage: 2.5 MG DAILY
     Route: 065
  7. BISOPROLOL [Concomitant]
     Active Substance: BISOPROLOL
     Dosage: 5 MG, DAILY
     Route: 065
  8. BISOPROLOL [Concomitant]
     Active Substance: BISOPROLOL
     Dosage: 2.5 MG DAILY
     Route: 065
  9. ENTOCORT [Concomitant]
     Active Substance: BUDESONIDE
     Indication: Crohn^s disease
     Dosage: 6 MG, 1X/DAY
  10. EDOXABAN TOSYLATE [Concomitant]
     Active Substance: EDOXABAN TOSYLATE
     Dosage: 60 MG, DAILY
     Route: 065
  11. MAGNESIUM [Concomitant]
     Active Substance: MAGNESIUM
     Indication: Mineral supplementation
     Dosage: 1120 MG, DAILY
     Route: 065
  12. MAGNESIUM [Concomitant]
     Active Substance: MAGNESIUM
     Dosage: 1220 MG
  13. PANTOPRAZOLE [Concomitant]
     Active Substance: PANTOPRAZOLE
     Dosage: 20 MG, DAILY
  14. PERINDOPRIL [Concomitant]
     Active Substance: PERINDOPRIL
     Dosage: 2 MG, DAILY
     Route: 065
  15. POTASSIUM [Concomitant]
     Active Substance: POTASSIUM
     Dosage: 99 MG, DAILY
     Route: 065
  16. POTASSIUM [Concomitant]
     Active Substance: POTASSIUM
     Dosage: 600 MG, DAILY
     Route: 065
  17. POTASSIUM [Concomitant]
     Active Substance: POTASSIUM
     Dosage: 99 MG, DAILY
     Route: 065
  18. PREDNISONE [Concomitant]
     Active Substance: PREDNISONE
     Dosage: 30 MG, DAILY
     Route: 065
  19. PREDNISONE [Concomitant]
     Active Substance: PREDNISONE
     Dosage: 30 MG, DAILY
     Route: 065
     Dates: start: 20220511
  20. PROLIA [Concomitant]
     Active Substance: DENOSUMAB
     Dosage: UNK
     Route: 065
  21. TAMOXIFEN [Concomitant]
     Active Substance: TAMOXIFEN
     Dosage: 20 MG, DAILY
     Route: 065
     Dates: start: 2012
  22. VITAMIN B12 [Concomitant]
     Active Substance: CYANOCOBALAMIN
     Dosage: 1000 UG, DAILY
     Route: 048
  23. ERGOCALCIFEROL [Concomitant]
     Active Substance: ERGOCALCIFEROL
     Dosage: 1000 IU, DAILY
     Route: 065
  24. VITAMIN D3 [Concomitant]
     Active Substance: CHOLECALCIFEROL
     Dosage: 1000 MG, DAILY

REACTIONS (16)
  - Condition aggravated [Unknown]
  - Deafness [Not Recovered/Not Resolved]
  - Drug ineffective [Unknown]
  - Off label use [Unknown]
  - Off label use [Unknown]
  - Oral disorder [Not Recovered/Not Resolved]
  - Gingival disorder [Not Recovered/Not Resolved]
  - Oropharyngeal pain [Not Recovered/Not Resolved]
  - Decreased appetite [Not Recovered/Not Resolved]
  - Oral candidiasis [Recovering/Resolving]
  - Pain [Not Recovered/Not Resolved]
  - Dysphagia [Unknown]
  - Secretion discharge [Not Recovered/Not Resolved]
  - COVID-19 [Unknown]
  - Malaise [Not Recovered/Not Resolved]
  - Nausea [Unknown]

NARRATIVE: CASE EVENT DATE: 20220101
